FAERS Safety Report 19089172 (Version 3)
Quarter: 2021Q4

REPORT INFORMATION
  Report Type: Report from Study
  Country: KE (occurrence: KE)
  Receive Date: 20210403
  Receipt Date: 20211230
  Transmission Date: 20220303
  Serious: Yes (Other)
  Sender: FDA-Public Use
  Company Number: KE-CIPLA LTD.-2021KE02445

PATIENT

DRUGS (6)
  1. LOPINAVIR\RITONAVIR [Suspect]
     Active Substance: LOPINAVIR\RITONAVIR
     Indication: HIV infection
     Dosage: 4 DOSAGE FORM, BID (160/40MG BID)
     Route: 048
     Dates: start: 20151207, end: 20180611
  2. ABACAVIR\LAMIVUDINE [Suspect]
     Active Substance: ABACAVIR\LAMIVUDINE
     Indication: HIV infection
     Dosage: 2 DOSAGE FORM, BID (120/60 MG TWICE DAILY)
     Route: 048
     Dates: start: 20151207, end: 20180611
  3. ISONIAZID [Suspect]
     Active Substance: ISONIAZID
     Indication: Prophylaxis
     Dosage: UNK
     Route: 065
     Dates: start: 20170130, end: 20180611
  4. FOLATE SODIUM [Concomitant]
     Active Substance: FOLATE SODIUM
     Indication: Product used for unknown indication
     Dosage: UNK
     Route: 065
     Dates: start: 20170619, end: 20170719
  5. COTRIMOXAZOLE [Concomitant]
     Active Substance: SULFAMETHOXAZOLE\TRIMETHOPRIM
     Indication: Prophylaxis
     Dosage: UNK
     Route: 065
     Dates: start: 20150915
  6. PYRIDOXINE [Concomitant]
     Active Substance: PYRIDOXINE
     Indication: Drug toxicity prophylaxis
     Dosage: UNK
     Route: 065
     Dates: start: 20170130, end: 20170619

REACTIONS (3)
  - Hepatic enzyme increased [Recovered/Resolved]
  - Respiratory tract infection [Recovered/Resolved]
  - Candida infection [Recovered/Resolved]

NARRATIVE: CASE EVENT DATE: 20160412
